FAERS Safety Report 7477564-7 (Version None)
Quarter: 2011Q2

REPORT INFORMATION
  Report Type: 
  Country: None (occurrence: None)
  Receive Date: 20110511
  Receipt Date: 20110511
  Transmission Date: 20111010
  Serious: Yes (Life-Threatening, Hospitalization)
  Sender: FDA-Public Use
  Company Number: None

PATIENT
  Sex: Female
  Weight: 65.9 kg

DRUGS (1)
  1. WARFARIN SODIUM [Suspect]
     Indication: THROMBOSIS
     Dosage: 5 MG ONCE DAILY MOUTH
     Route: 048
     Dates: start: 20101101, end: 20110430

REACTIONS (4)
  - PRODUCT QUALITY ISSUE [None]
  - INTERNATIONAL NORMALISED RATIO INCREASED [None]
  - GINGIVAL BLEEDING [None]
  - TONGUE HAEMORRHAGE [None]
